FAERS Safety Report 6004196-X (Version None)
Quarter: 2008Q4

REPORT INFORMATION
  Report Type: 
  Country: None (occurrence: None)
  Receive Date: 20081215
  Receipt Date: 20081215
  Transmission Date: 20090506
  Serious: No
  Sender: FDA-Public Use
  Company Number: None

PATIENT
  Age: 89 Year
  Sex: Male
  Weight: 73.0291 kg

DRUGS (1)
  1. LEVAQUIN [Suspect]
     Indication: ORCHITIS
     Dosage: 1 DAILY PO
     Route: 048
     Dates: start: 20081124, end: 20081212

REACTIONS (1)
  - TENDON PAIN [None]
